FAERS Safety Report 5141743-4 (Version None)
Quarter: 2006Q4

REPORT INFORMATION
  Report Type: 
  Country: None (occurrence: None)
  Receive Date: 20061027
  Receipt Date: 20061009
  Transmission Date: 20070319
  Serious: Yes (Hospitalization)
  Sender: FDA-Public Use
  Company Number: TW200609005274

PATIENT
  Age: 23 Year
  Sex: Male

DRUGS (7)
  1. OLANZAPINE [Suspect]
     Dosage: 5 MG DAILY (1/D), ORAL
     Route: 048
     Dates: start: 20060615, end: 20060714
  2. OLANZAPINE [Suspect]
     Dosage: 5 MG DAILY (1/D), ORAL
     Route: 048
     Dates: start: 20060921
  3. DEPAKENE [Concomitant]
  4. RIVOTRIL /NOR/ (CLONAZEPAM) [Concomitant]
  5. STILNOX /FRA/ (ZOLPIDEM) [Concomitant]
  6. XANAX /(USA)/ (ALPRAZOLAM) [Concomitant]
  7. DORMICUM ROCHE (MIDAZOLAM MALEATE) [Concomitant]

REACTIONS (2)
  - BIPOLAR DISORDER [None]
  - CONDITION AGGRAVATED [None]
